FAERS Safety Report 4786127-3 (Version None)
Quarter: 2005Q3

REPORT INFORMATION
  Report Type: 
  Country: None (occurrence: None)
  Receive Date: 20050930
  Receipt Date: 20050228
  Transmission Date: 20060218
  Serious: Yes (Hospitalization)
  Sender: FDA-Public Use
  Company Number: 2005FR-00287

PATIENT
  Age: 84 Year
  Sex: Male

DRUGS (4)
  1. ASPIRIN [Suspect]
     Dosage: 75 MG ORAL
     Route: 048
     Dates: start: 20020128, end: 20050128
  2. ATENOLOL [Concomitant]
  3. BENDROFLUAZIDE [Concomitant]
  4. FYBOGEL [Concomitant]

REACTIONS (1)
  - GASTROINTESTINAL HAEMORRHAGE [None]
